FAERS Safety Report 4578685-9 (Version None)
Quarter: 2005Q1

REPORT INFORMATION
  Report Type: 
  Country: None (occurrence: None)
  Receive Date: 20050211
  Receipt Date: 20040430
  Transmission Date: 20050727
  Serious: Yes (Death)
  Sender: FDA-Public Use
  Company Number: CA-ROCHE-366413

PATIENT
  Age: 16 Year
  Sex: Male

DRUGS (3)
  1. ACCUTANE [Suspect]
     Indication: DRUG USE FOR UNKNOWN INDICATION
     Route: 065
  2. ZYPREXA [Concomitant]
  3. PAXIL [Concomitant]
     Indication: ANXIETY
     Route: 048
     Dates: start: 20030615

REACTIONS (3)
  - ANXIETY [None]
  - COMPLETED SUICIDE [None]
  - NIGHTMARE [None]
